FAERS Safety Report 7005797-2 (Version None)
Quarter: 2010Q3

REPORT INFORMATION
  Report Type: 
  Country: None (occurrence: None)
  Receive Date: 20100921
  Receipt Date: 20100915
  Transmission Date: 20110219
  Serious: Yes (Life-Threatening, Other)
  Sender: FDA-Public Use
  Company Number: FR-BRISTOL-MYERS SQUIBB COMPANY-15270259

PATIENT
  Age: 56 Year
  Sex: Male
  Weight: 93 kg

DRUGS (4)
  1. CETUXIMAB [Suspect]
     Indication: HEAD AND NECK CANCER
     Route: 042
     Dates: start: 20100824, end: 20100824
  2. CISPLATIN [Suspect]
     Indication: HEAD AND NECK CANCER
     Route: 042
     Dates: start: 20100824, end: 20100824
  3. CILENGITIDE [Suspect]
     Indication: HEAD AND NECK CANCER
     Dosage: LAST DOSE ON:27AUG2010 NO OF INF:2
     Route: 042
     Dates: start: 20100824, end: 20100827
  4. FLUOROURACIL [Suspect]
     Indication: HEAD AND NECK CANCER
     Dosage: RECENT INF:27AUG2010 NO OF INF:4
     Route: 042
     Dates: start: 20100824, end: 20100827

REACTIONS (3)
  - ACUTE HEPATIC FAILURE [None]
  - FEBRILE NEUTROPENIA [None]
  - THROMBOCYTOPENIA [None]
